FAERS Safety Report 4357255-1 (Version None)
Quarter: 2004Q2

REPORT INFORMATION
  Report Type: 
  Country: None (occurrence: None)
  Receive Date: 20040507
  Receipt Date: 20040421
  Transmission Date: 20050107
  Serious: Yes (Life-Threatening, Hospitalization)
  Sender: FDA-Public Use
  Company Number: US_0404102466

PATIENT
  Age: 58 Year
  Sex: Female
  Weight: 83 kg

DRUGS (2)
  1. GEMCITABINE HYDROCHLORIDE           (GEMCITABINE) [Suspect]
     Indication: BREAST CANCER METASTATIC
     Dosage: 750 MG/M2 OTHER
     Route: 042
     Dates: start: 20030421
  2. DOCETAXEL [Suspect]
     Indication: BREAST CANCER METASTATIC
     Dosage: 75 MG/M2 OTHER
     Route: 050
     Dates: start: 20030421

REACTIONS (16)
  - ASTHENIA [None]
  - COLITIS [None]
  - CYTOMEGALOVIRUS INFECTION [None]
  - ENTEROVESICAL FISTULA [None]
  - FISTULA [None]
  - LARGE INTESTINAL ULCER [None]
  - LIVER DISORDER [None]
  - METASTASES TO SPINE [None]
  - METASTATIC NEOPLASM [None]
  - MUCOSAL ULCERATION [None]
  - NEUROPATHY [None]
  - OEDEMA PERIPHERAL [None]
  - SEROMA [None]
  - SPINAL COMPRESSION FRACTURE [None]
  - SPINAL CORD OEDEMA [None]
  - URINARY TRACT INFECTION [None]
